FAERS Safety Report 25112152 (Version 1)
Quarter: 2025Q1

REPORT INFORMATION
  Report Type: Spontaneous
  Country: US (occurrence: None)
  Receive Date: 20250321
  Receipt Date: 20250321
  Transmission Date: 20250409
  Serious: No
  Sender: FDA-CTU
  Company Number: None

PATIENT
  Age: 79 Year
  Sex: Female

DRUGS (6)
  1. JAKAFI [Suspect]
     Active Substance: RUXOLITINIB
     Dosage: FREQUENCY : TWICE A DAY;?
     Route: 048
     Dates: start: 20231102
  2. ALBUTEROL [Concomitant]
     Active Substance: ALBUTEROL
  3. LOW DOE ASPIRIN [Concomitant]
  4. MINOXIDIL [Concomitant]
     Active Substance: MINOXIDIL
  5. TRAZODONE [Concomitant]
     Active Substance: TRAZODONE HYDROCHLORIDE
  6. SYMBICORT [Concomitant]
     Active Substance: BUDESONIDE\FORMOTEROL FUMARATE DIHYDRATE

REACTIONS (2)
  - Therapy change [None]
  - Neoplasm malignant [None]

NARRATIVE: CASE EVENT DATE: 20250321
